FAERS Safety Report 8070219-X (Version None)
Quarter: 2012Q1

REPORT INFORMATION
  Report Type: 
  Country: None (occurrence: None)
  Receive Date: 20120125
  Receipt Date: 20120116
  Transmission Date: 20120608
  Serious: Yes (Death)
  Sender: FDA-Public Use
  Company Number: CA-ACTELION-A-US2011-58242

PATIENT

DRUGS (9)
  1. TRACLEER [Suspect]
     Indication: PULMONARY ARTERIAL HYPERTENSION
     Dosage: 125 MG, BID
     Route: 049
  2. LEVOTHYROXINE SODIUM [Concomitant]
  3. SIMVASTAN [Concomitant]
  4. BETAHISTINE [Concomitant]
  5. WARFARIN SODIUM [Concomitant]
  6. MISOPROSTOL [Concomitant]
  7. DICLOFENAC [Concomitant]
  8. IRON [Concomitant]
  9. ATIVAN [Concomitant]

REACTIONS (5)
  - DYSPNOEA [None]
  - SYNCOPE [None]
  - FALL [None]
  - DIZZINESS [None]
  - LOSS OF CONSCIOUSNESS [None]
